FAERS Safety Report 4471506-4 (Version None)
Quarter: 2004Q4

REPORT INFORMATION
  Report Type: 
  Country: None (occurrence: None)
  Receive Date: 20041008
  Receipt Date: 20041008
  Transmission Date: 20050328
  Serious: Yes (Disabling, Congenital Anomaly)
  Sender: FDA-Public Use
  Company Number: None

PATIENT
  Age: 28 Year
  Sex: Male
  Weight: 63.5036 kg

DRUGS (2)
  1. CIPRO [Suspect]
     Indication: PROSTATITIS
     Dosage: 500 MG TWICE A DAY ORAL
     Route: 048
     Dates: start: 20040802, end: 20040818
  2. CIPRO [Suspect]
     Indication: URINARY TRACT INFECTION
     Dosage: 500 MG TWICE A DAY ORAL
     Route: 048
     Dates: start: 20040802, end: 20040818

REACTIONS (3)
  - ARTHRALGIA [None]
  - PAIN [None]
  - TENDON DISORDER [None]
